FAERS Safety Report 4917195-3 (Version None)
Quarter: 2006Q1

REPORT INFORMATION
  Report Type: 
  Country: None (occurrence: None)
  Receive Date: 20060221
  Receipt Date: 20060130
  Transmission Date: 20060701
  Serious: Yes (Hospitalization)
  Sender: FDA-Public Use
  Company Number: 2006PK00265

PATIENT
  Age: 26201 Day
  Sex: Female
  Weight: 49 kg

DRUGS (4)
  1. IRESSA [Suspect]
     Indication: NON-SMALL CELL LUNG CANCER METASTATIC
     Route: 048
     Dates: start: 20041119
  2. NIFATENOL [Concomitant]
     Indication: HYPERTENSION
     Route: 048
  3. ASPIRIN [Concomitant]
     Indication: PROPHYLAXIS
     Route: 048
  4. L-THYROXIN [Concomitant]
     Indication: HYPOTHYROIDISM
     Route: 048
     Dates: start: 19960101

REACTIONS (8)
  - DIARRHOEA [None]
  - DYSPNOEA [None]
  - EMBOLISM [None]
  - FEELING COLD [None]
  - INFECTION [None]
  - PAIN [None]
  - PULMONARY HYPERTENSION [None]
  - PYREXIA [None]
